FAERS Safety Report 19376258 (Version 2)
Quarter: 2021Q3

REPORT INFORMATION
  Report Type: Report from Study
  Country: None (occurrence: US)
  Receive Date: 20210604
  Receipt Date: 20210723
  Transmission Date: 20211014
  Serious: Yes (Hospitalization)
  Sender: FDA-Public Use
  Company Number: US-ABBVIE-21K-163-3930991-00

PATIENT
  Age: 62 Year
  Sex: Female
  Weight: 95.34 kg

DRUGS (7)
  1. RINVOQ [Suspect]
     Active Substance: UPADACITINIB
     Route: 048
     Dates: start: 20210108, end: 20210519
  2. LISINOPRIL. [Concomitant]
     Active Substance: LISINOPRIL
     Indication: PRODUCT USED FOR UNKNOWN INDICATION
  3. COVID?19 VACCINE [Concomitant]
     Dosage: MODERNA
     Route: 030
     Dates: start: 202103, end: 202103
  4. RINVOQ [Suspect]
     Active Substance: UPADACITINIB
     Route: 048
     Dates: start: 20210524
  5. RINVOQ [Suspect]
     Active Substance: UPADACITINIB
     Indication: RHEUMATOID ARTHRITIS
     Route: 048
     Dates: start: 2018, end: 20210101
  6. METFORMIN [Concomitant]
     Active Substance: METFORMIN HYDROCHLORIDE
     Indication: PRODUCT USED FOR UNKNOWN INDICATION
  7. COVID?19 VACCINE [Concomitant]
     Indication: COVID-19 IMMUNISATION
     Dosage: MODERNA
     Route: 030
     Dates: start: 202102, end: 202102

REACTIONS (11)
  - Osteonecrosis of jaw [Recovering/Resolving]
  - Purulence [Recovered/Resolved]
  - Tooth infection [Recovered/Resolved]
  - Osteomyelitis [Recovered/Resolved]
  - Jaw fracture [Recovering/Resolving]
  - Tooth fracture [Recovered/Resolved]
  - Pain in extremity [Not Recovered/Not Resolved]
  - Infection [Recovered/Resolved]
  - Back pain [Not Recovered/Not Resolved]
  - Gait inability [Not Recovered/Not Resolved]
  - Spinal stenosis [Not Recovered/Not Resolved]

NARRATIVE: CASE EVENT DATE: 2019
